FAERS Safety Report 24190312 (Version 2)
Quarter: 2024Q3

REPORT INFORMATION
  Report Type: Report from Study
  Country: US (occurrence: US)
  Receive Date: 20240808
  Receipt Date: 20240816
  Transmission Date: 20241016
  Serious: Yes (Hospitalization, Other)
  Sender: NOVARTIS
  Company Number: US-002147023-NVSC2024US131849

PATIENT
  Sex: Male
  Weight: 127.27 kg

DRUGS (5)
  1. COSENTYX [Suspect]
     Active Substance: SECUKINUMAB
     Indication: Hidradenitis
     Dosage: 300 MG, Q4W
     Route: 058
     Dates: start: 20240303, end: 20240530
  2. COSENTYX [Suspect]
     Active Substance: SECUKINUMAB
     Dosage: 300 MG, QMO
     Route: 058
     Dates: start: 20240430
  3. COSENTYX [Suspect]
     Active Substance: SECUKINUMAB
     Dosage: 300 MG, QW (WEEK 0, 1, 2, 3, 4)
     Route: 058
     Dates: start: 20240503, end: 20240510
  4. COSENTYX [Suspect]
     Active Substance: SECUKINUMAB
     Dosage: UNK, Q4W
     Route: 065
     Dates: start: 20240320, end: 20240530
  5. METFORMIN [Concomitant]
     Active Substance: METFORMIN HYDROCHLORIDE
     Indication: Diabetes mellitus
     Dosage: UNK
     Route: 065

REACTIONS (8)
  - Sepsis [Recovered/Resolved]
  - Perineal abscess [Unknown]
  - Stress [Unknown]
  - Anxiety [Unknown]
  - Device malfunction [Unknown]
  - Skin lesion [Unknown]
  - Condition aggravated [Unknown]
  - Off label use [Unknown]
